FAERS Safety Report 20950723 (Version 2)
Quarter: 2022Q2

REPORT INFORMATION
  Report Type: Spontaneous
  Country: US (occurrence: US)
  Receive Date: 20220613
  Receipt Date: 20220622
  Transmission Date: 20220720
  Serious: Yes (Other)
  Sender: FDA-Public Use
  Company Number: US-BRISTOL-MYERS SQUIBB COMPANY-2022-051410

PATIENT
  Age: 43 Year
  Sex: Male
  Weight: 99.790 kg

DRUGS (1)
  1. REVLIMID [Suspect]
     Active Substance: LENALIDOMIDE
     Indication: Plasma cell myeloma
     Dosage: 2W, 1W OFF
     Route: 048
     Dates: start: 20220301

REACTIONS (3)
  - Rash [Recovered/Resolved]
  - Neuropathy peripheral [Unknown]
  - Off label use [Unknown]
